FAERS Safety Report 5227028-6 (Version None)
Quarter: 2007Q1

REPORT INFORMATION
  Report Type: 
  Country: None (occurrence: None)
  Receive Date: 20070202
  Receipt Date: 20070125
  Transmission Date: 20070707
  Serious: Yes (Other)
  Sender: FDA-Public Use
  Company Number: HQWYE868129JAN07

PATIENT
  Age: 22 Year
  Sex: Female

DRUGS (1)
  1. PREMARIN [Suspect]
     Indication: MENSTRUATION IRREGULAR
     Dosage: UNKNOWN
     Route: 048

REACTIONS (1)
  - LIVER DISORDER [None]
